FAERS Safety Report 15954514 (Version 1)
Quarter: 2019Q1

REPORT INFORMATION
  Report Type: Spontaneous
  Country: GB (occurrence: GB)
  Receive Date: 20190212
  Receipt Date: 20190212
  Transmission Date: 20190417
  Serious: Yes (Hospitalization)
  Sender: FDA-Public Use
  Company Number: GB-MYLANLABS-2019M1011960

PATIENT
  Age: 23 Year
  Sex: Female

DRUGS (1)
  1. ISOTRETINOIN. [Suspect]
     Active Substance: ISOTRETINOIN
     Indication: ACNE
     Dosage: 80 MILLIGRAM, QD
     Route: 048
     Dates: start: 20180420, end: 20180627

REACTIONS (7)
  - Malaise [Unknown]
  - Thirst [Unknown]
  - Dyspnoea [Unknown]
  - Pollakiuria [Unknown]
  - Abnormal loss of weight [Unknown]
  - Vomiting [Unknown]
  - Diabetic ketoacidosis [Recovering/Resolving]

NARRATIVE: CASE EVENT DATE: 20180627
